FAERS Safety Report 25458780 (Version 1)
Quarter: 2025Q2

REPORT INFORMATION
  Report Type: Spontaneous
  Country: US (occurrence: US)
  Receive Date: 20250620
  Receipt Date: 20250620
  Transmission Date: 20250717
  Serious: No
  Sender: ROCHE
  Company Number: US-ROCHE-10000315595

PATIENT
  Sex: Female

DRUGS (1)
  1. ACTEMRA ACTPEN [Suspect]
     Active Substance: TOCILIZUMAB
     Indication: Rheumatoid arthritis
     Dosage: (STRENGTH REPORTED AS: 162MG/0.9ML)
     Route: 058
     Dates: start: 202411

REACTIONS (2)
  - Blood fibrinogen decreased [Unknown]
  - Contusion [Unknown]
